FAERS Safety Report 6295951-X (Version None)
Quarter: 2009Q3

REPORT INFORMATION
  Report Type: 
  Country: None (occurrence: None)
  Receive Date: 20090803
  Receipt Date: 20090803
  Transmission Date: 20100115
  Serious: Yes (Life-Threatening)
  Sender: FDA-Public Use
  Company Number: None

PATIENT
  Sex: Female
  Weight: 58.9676 kg

DRUGS (1)
  1. PARACAINE [Suspect]
     Indication: INFECTION PROPHYLAXIS
     Dosage: 7-8 DROPS ONCE OPHTHALMIC
     Route: 047
     Dates: start: 20090728, end: 20090728

REACTIONS (5)
  - CHILLS [None]
  - DIARRHOEA [None]
  - HEART RATE INCREASED [None]
  - HYPERHIDROSIS [None]
  - VOMITING [None]
